FAERS Safety Report 21327590 (Version 1)
Quarter: 2022Q3

REPORT INFORMATION
  Report Type: Spontaneous
  Country: CN (occurrence: CN)
  Receive Date: 20220913
  Receipt Date: 20220913
  Transmission Date: 20221027
  Serious: Yes (Other)
  Sender: FDA-Public Use
  Company Number: CN-009507513-2209CHN002408

PATIENT
  Age: 73 Year
  Sex: Male
  Weight: 49 kg

DRUGS (10)
  1. CILASTATIN SODIUM\IMIPENEM [Suspect]
     Active Substance: CILASTATIN SODIUM\IMIPENEM
     Indication: Bronchitis chronic
     Dosage: 1 G, Q8H
     Route: 041
     Dates: start: 20220728, end: 20220802
  2. CILASTATIN SODIUM\IMIPENEM [Suspect]
     Active Substance: CILASTATIN SODIUM\IMIPENEM
     Indication: Emphysema
     Dosage: 1 G, Q12H
     Route: 041
     Dates: start: 20220803, end: 20220812
  3. LEVOFLOXACIN [Suspect]
     Active Substance: LEVOFLOXACIN
     Indication: Bronchitis chronic
     Dosage: 0.5 G, ONCE A DAY
     Route: 048
     Dates: start: 20220726, end: 20220812
  4. LEVOFLOXACIN [Suspect]
     Active Substance: LEVOFLOXACIN
     Indication: Emphysema
  5. PIPERACILLIN AND TAZOBACTAM [Suspect]
     Active Substance: PIPERACILLIN SODIUM\TAZOBACTAM SODIUM
     Indication: Bronchitis chronic
     Dosage: 4.5 G, Q8H
     Route: 041
     Dates: start: 20220723, end: 20220727
  6. PIPERACILLIN AND TAZOBACTAM [Suspect]
     Active Substance: PIPERACILLIN SODIUM\TAZOBACTAM SODIUM
     Indication: Emphysema
  7. ACETYLCYSTEINE [Concomitant]
     Active Substance: ACETYLCYSTEINE
     Indication: Bronchitis chronic
     Dosage: 0.6 G, TWICE A DAY
     Route: 048
     Dates: start: 20220723, end: 20220825
  8. ACETYLCYSTEINE [Concomitant]
     Active Substance: ACETYLCYSTEINE
     Indication: Emphysema
  9. SODIUM CHLORIDE [Concomitant]
     Active Substance: SODIUM CHLORIDE
     Indication: Bronchitis chronic
     Dosage: 100 ML, Q8H
     Route: 041
     Dates: start: 20220723, end: 20220802
  10. SODIUM CHLORIDE [Concomitant]
     Active Substance: SODIUM CHLORIDE
     Indication: Emphysema
     Dosage: 100 ML, Q12H
     Route: 041
     Dates: start: 20220803, end: 20220812

REACTIONS (1)
  - Respiratory tract infection fungal [Recovering/Resolving]

NARRATIVE: CASE EVENT DATE: 20220809
